FAERS Safety Report 17285118 (Version 2)
Quarter: 2020Q1

REPORT INFORMATION
  Report Type: Spontaneous
  Country: US (occurrence: US)
  Receive Date: 20200117
  Receipt Date: 20200120
  Transmission Date: 20200409
  Serious: No
  Sender: FDA-Public Use
  Company Number: US-TARO-2019TAR00516

PATIENT
  Age: 59 Year
  Sex: Female

DRUGS (1)
  1. CLOMIPRAMINE HCL CAPSULES 25 MG [Suspect]
     Active Substance: CLOMIPRAMINE HYDROCHLORIDE

REACTIONS (1)
  - Therapeutic product effect incomplete [Unknown]
